FAERS Safety Report 8097627-5 (Version None)
Quarter: 2012Q1

REPORT INFORMATION
  Report Type: 
  Country: None (occurrence: None)
  Receive Date: 20120128
  Receipt Date: 20110701
  Transmission Date: 20120608
  Serious: No
  Sender: FDA-Public Use
  Company Number: US-ABBOTT-11P-163-0836443-00

PATIENT
  Sex: Female

DRUGS (12)
  1. RISPERDAL [Concomitant]
     Indication: BIPOLAR DISORDER
     Route: 048
  2. DIAZEPAM [Concomitant]
     Indication: ANXIETY
     Dosage: TWICE DAILY, AS NEEDED
     Route: 048
  3. CLONAZEPAM [Concomitant]
     Indication: ANXIETY
     Route: 048
  4. CYMBALTA [Concomitant]
     Indication: DEPRESSION
     Route: 048
  5. DICYCLOMINE HCL [Concomitant]
     Indication: MUSCLE SPASMS
     Dosage: TWICE DAILY, AS NEEDED
     Route: 048
  6. FIORICET [Concomitant]
     Indication: HEADACHE
     Dosage: TWICE DAILY, AS NEEDED
     Route: 048
  7. HUMIRA [Suspect]
     Indication: CROHN'S DISEASE
     Route: 058
     Dates: start: 20110215
  8. CLONAZEPAM [Concomitant]
     Indication: DEPRESSION
  9. LAMICTAL [Concomitant]
     Indication: BIPOLAR DISORDER
     Route: 048
  10. VALTREX [Concomitant]
     Indication: GENITAL HERPES
     Route: 048
  11. ABILIFY [Concomitant]
     Indication: DEPRESSION
     Route: 048
  12. AMBIEN [Concomitant]
     Indication: INSOMNIA
     Dosage: AT BEDTIME
     Route: 048

REACTIONS (1)
  - INJECTION SITE PAIN [None]
